FAERS Safety Report 6939435-1 (Version None)
Quarter: 2010Q3

REPORT INFORMATION
  Report Type: 
  Country: None (occurrence: None)
  Receive Date: 20100819
  Receipt Date: 20100805
  Transmission Date: 20110219
  Serious: Yes (Death, Hospitalization)
  Sender: FDA-Public Use
  Company Number: AUR-APL-2010-01976

PATIENT
  Age: 53 Year
  Sex: Female

DRUGS (8)
  1. SIMVASTATIN [Suspect]
     Dosage: 40MG, DAILY, ORAL
     Route: 048
  2. DOSULPIN HYDROCHLORIDE [Concomitant]
  3. DOXAZOSIN MESYLATE [Concomitant]
  4. FELODIPINE [Concomitant]
  5. FLUOXETINE [Concomitant]
  6. NITRAZEPAM [Concomitant]
  7. ORLISTAT [Concomitant]
  8. RAMIPRIL [Concomitant]

REACTIONS (8)
  - ANURIA [None]
  - BACTERIAL INFECTION [None]
  - HYPERKALAEMIA [None]
  - HYPOTENSION [None]
  - JAUNDICE [None]
  - METABOLIC ACIDOSIS [None]
  - RHABDOMYOLYSIS [None]
  - UNRESPONSIVE TO STIMULI [None]
